FAERS Safety Report 6451505-3 (Version None)
Quarter: 2009Q4

REPORT INFORMATION
  Report Type: 
  Country: None (occurrence: None)
  Receive Date: 20091123
  Receipt Date: 20090806
  Transmission Date: 20100525
  Serious: No
  Sender: FDA-Public Use
  Company Number: US-BRISTOL-MYERS SQUIBB COMPANY-14730980

PATIENT
  Age: 82 Year
  Sex: Female
  Weight: 63 kg

DRUGS (8)
  1. AVALIDE [Suspect]
     Dosage: 1 DOSAGEFORM = 150/12.5MG
     Dates: start: 20090801
  2. WARFARIN [Concomitant]
  3. COREG [Concomitant]
  4. CRESTOR [Concomitant]
  5. KLOR-CON [Concomitant]
  6. METAMUCIL [Concomitant]
  7. NORVASC [Concomitant]
     Dates: end: 20090803
  8. KAPIDEX [Concomitant]

REACTIONS (1)
  - RASH [None]
